FAERS Safety Report 15249647 (Version 1)
Quarter: 2018Q3

REPORT INFORMATION
  Report Type: Spontaneous
  Country: US (occurrence: US)
  Receive Date: 20180716
  Receipt Date: 20180716
  Transmission Date: 20181010
  Serious: Yes (Hospitalization)
  Sender: FDA-Public Use
  Company Number: None

PATIENT
  Age: 65 Year
  Sex: Female

DRUGS (22)
  1. LIPITOR [Concomitant]
     Active Substance: ATORVASTATIN CALCIUM
  2. DIGOXIN. [Concomitant]
     Active Substance: DIGOXIN
  3. ESTRADIOL. [Concomitant]
     Active Substance: ESTRADIOL
  4. SPIRONOLACTONEAMILORIDE [Concomitant]
  5. HYDROXYZ HCL [Concomitant]
     Active Substance: HYDROXYZINE HYDROCHLORIDE
  6. ZOLOFT [Concomitant]
     Active Substance: SERTRALINE HYDROCHLORIDE
  7. DEPAKOTE [Concomitant]
     Active Substance: DIVALPROEX SODIUM
  8. SYSTANE (HYPROMELLOSE 2910 (4000 MPA.S)) [Concomitant]
     Active Substance: HYPROMELLOSE 2910 (4000 MPA.S)
  9. SERTRALINE [Concomitant]
     Active Substance: SERTRALINE HYDROCHLORIDE
  10. BCOMPLEX [Concomitant]
  11. ADCIRCA [Suspect]
     Active Substance: TADALAFIL
     Indication: PULMONARY ARTERIAL HYPERTENSION
     Route: 048
     Dates: start: 201201
  12. VITAMIN D [Concomitant]
     Active Substance: CHOLECALCIFEROL
  13. WARFARIN [Concomitant]
     Active Substance: WARFARIN
  14. FENOFIBRATE. [Concomitant]
     Active Substance: FENOFIBRATE
  15. METOPROLOL. [Concomitant]
     Active Substance: METOPROLOL
  16. FOLIC ACID. [Concomitant]
     Active Substance: FOLIC ACID
  17. FISH OIL [Concomitant]
     Active Substance: FISH OIL
  18. FUROSEMID [Concomitant]
     Active Substance: FUROSEMIDE
  19. CIMETIDINE [Concomitant]
     Active Substance: CIMETIDINE
  20. FENTANYL TRANSDERMAL SYSTEM [Concomitant]
     Active Substance: FENTANYL
  21. OXYCODONE [Concomitant]
     Active Substance: OXYCODONE
  22. POT CL [Concomitant]

REACTIONS (1)
  - Bronchitis [None]

NARRATIVE: CASE EVENT DATE: 201806
